FAERS Safety Report 4567199-8 (Version None)
Quarter: 2005Q1

REPORT INFORMATION
  Report Type: 
  Country: None (occurrence: None)
  Receive Date: 20050201
  Receipt Date: 20050110
  Transmission Date: 20050727
  Serious: Yes (Other)
  Sender: FDA-Public Use
  Company Number: AU-GLAXOSMITHKLINE-B0364711A

PATIENT
  Age: 35 Year
  Sex: Female

DRUGS (2)
  1. ZYBAN [Suspect]
     Indication: ILL-DEFINED DISORDER
     Dosage: 1TAB VARIABLE DOSE
     Route: 048
     Dates: start: 20041215, end: 20041221
  2. KEFLEX [Concomitant]
     Indication: BRONCHITIS
     Dosage: 500MG FOUR TIMES PER DAY
     Route: 048
     Dates: start: 20041213, end: 20041218

REACTIONS (6)
  - DIZZINESS [None]
  - FEELING ABNORMAL [None]
  - FORMICATION [None]
  - HALLUCINATION, TACTILE [None]
  - PALPITATIONS [None]
  - TREMOR [None]
